FAERS Safety Report 7928657-9 (Version None)
Quarter: 2011Q4

REPORT INFORMATION
  Report Type: 
  Country: None (occurrence: None)
  Receive Date: 20111118
  Receipt Date: 20111115
  Transmission Date: 20120403
  Serious: Yes (Hospitalization)
  Sender: FDA-Public Use
  Company Number: ES-ELI_LILLY_AND_COMPANY-ES201111004817

PATIENT
  Age: 40 Year
  Sex: Female

DRUGS (1)
  1. EFFIENT [Suspect]
     Indication: ACUTE MYOCARDIAL INFARCTION
     Dosage: 10 MG, UNKNOWN
     Route: 048
     Dates: start: 20110616, end: 20110712

REACTIONS (4)
  - DIARRHOEA [None]
  - PYREXIA [None]
  - HYPERTRANSAMINASAEMIA [None]
  - EOSINOPHILIA [None]
